FAERS Safety Report 13637402 (Version 1)
Quarter: 2017Q2

REPORT INFORMATION
  Report Type: Spontaneous
  Country: IL (occurrence: IL)
  Receive Date: 20170609
  Receipt Date: 20170609
  Transmission Date: 20170830
  Serious: Yes (Other)
  Sender: FDA-Public Use
  Company Number: IL-TEVA-775864ACC

PATIENT
  Age: 65 Year
  Sex: Female

DRUGS (2)
  1. FENTORA [Suspect]
     Active Substance: FENTANYL CITRATE
     Route: 065
     Dates: start: 20170518, end: 20170518
  2. FENTORA [Suspect]
     Active Substance: FENTANYL CITRATE
     Indication: BREAKTHROUGH PAIN
     Route: 065
     Dates: start: 20170518, end: 20170518

REACTIONS (6)
  - Erythema [Recovered/Resolved]
  - Off label use [Unknown]
  - Salivary hypersecretion [Recovered/Resolved]
  - Cough [Recovered/Resolved]
  - Dyspnoea [Recovered/Resolved]
  - Aspiration [Recovered/Resolved]

NARRATIVE: CASE EVENT DATE: 20170518
